FAERS Safety Report 5631071-2 (Version None)
Quarter: 2008Q1

REPORT INFORMATION
  Report Type: 
  Country: None (occurrence: None)
  Receive Date: 20080131
  Receipt Date: 20071116
  Transmission Date: 20080703
  Serious: No
  Sender: FDA-Public Use
  Company Number: 163-21880-07111085

PATIENT
  Age: 84 Year
  Sex: Female

DRUGS (2)
  1. REVLIMID [Suspect]
     Indication: MYELODYSPLASTIC SYNDROME
     Dosage: 10, 5  MG, DAILY X 21 DAYS, ORAL
     Route: 048
     Dates: start: 20060512, end: 20070401
  2. REVLIMID [Suspect]
     Indication: MYELODYSPLASTIC SYNDROME
     Dosage: 10, 5  MG, DAILY X 21 DAYS, ORAL
     Route: 048
     Dates: start: 20070416

REACTIONS (1)
  - DRUG INEFFECTIVE [None]
